FAERS Safety Report 11744743 (Version 5)
Quarter: 2015Q4

REPORT INFORMATION
  Report Type: Report from Study
  Country: PE (occurrence: PE)
  Receive Date: 20151116
  Receipt Date: 20151218
  Transmission Date: 20160304
  Serious: Yes (Hospitalization, Other)
  Sender: FDA-Public Use
  Company Number: PE-GILEAD-2015-0174369

PATIENT
  Age: 31 Year
  Sex: Female
  Weight: 82 kg

DRUGS (4)
  1. FERROUS SULFATE [Concomitant]
     Active Substance: FERROUS SULFATE\FERROUS SULFATE, DRIED
     Dosage: UNK
     Dates: start: 20150301
  2. PRENATAL VITAMINS                  /02014401/ [Concomitant]
     Active Substance: VITAMINS
     Dosage: UNK
     Dates: start: 201503
  3. FOLIC ACID. [Concomitant]
     Active Substance: FOLIC ACID
     Dosage: UNK
     Dates: start: 20150301
  4. EFAVIRENZ/EMTRICITABINE/TENOFOVIR DISOPROXIL FUMARATE [Suspect]
     Active Substance: EFAVIRENZ\EMTRICITABINE\TENOFOVIR DISOPROXIL FUMARATE
     Indication: HIV INFECTION
     Dosage: 1 DF, QD
     Route: 048
     Dates: start: 20130612

REACTIONS (2)
  - Caesarean section [Unknown]
  - Exposure during pregnancy [Recovered/Resolved]

NARRATIVE: CASE EVENT DATE: 20150115
